FAERS Safety Report 8791071 (Version 1)
Quarter: 2012Q4

REPORT INFORMATION
  Report Type: Spontaneous
  Country: US (occurrence: None)
  Receive Date: 20120913
  Receipt Date: 20120913
  Transmission Date: 20130627
  Serious: Yes (Life-Threatening, Hospitalization)
  Sender: FDA-Public Use
  Company Number: None

PATIENT
  Sex: Male
  Weight: 82.3 kg

DRUGS (4)
  1. RISPERDAL [Suspect]
     Dosage: 210 mg missing from bubble pack not sure possible overdose
     Dates: start: 20120819, end: 20120820
  2. GEODON [Suspect]
  3. SEROQUEL [Concomitant]
  4. SEROQUEL [Concomitant]

REACTIONS (11)
  - Psychotic disorder [None]
  - Musculoskeletal stiffness [None]
  - Posture abnormal [None]
  - Flat affect [None]
  - Lethargy [None]
  - Tachycardia [None]
  - Blood glucose increased [None]
  - Hyperhidrosis [None]
  - Delirium [None]
  - Tremor [None]
  - Body temperature increased [None]
